FAERS Safety Report 13843184 (Version 1)
Quarter: 2017Q3

REPORT INFORMATION
  Report Type: Spontaneous
  Country: US (occurrence: US)
  Receive Date: 20170808
  Receipt Date: 20170808
  Transmission Date: 20171127
  Serious: Yes (Disabling)
  Sender: FDA-Public Use
  Company Number: None

PATIENT
  Age: 41 Year
  Sex: Female
  Weight: 66.6 kg

DRUGS (4)
  1. TYLENOL [Concomitant]
     Active Substance: ACETAMINOPHEN
  2. VARIOUS VITAMINS [Concomitant]
     Active Substance: VITAMINS
  3. CIPROFLOXACIN HCL [Suspect]
     Active Substance: CIPROFLOXACIN HYDROCHLORIDE
     Indication: URINARY TRACT INFECTION
     Dosage: ?          QUANTITY:1 TABLET(S);?
     Route: 048
  4. ADVIL [Concomitant]
     Active Substance: IBUPROFEN

REACTIONS (11)
  - Asthenia [None]
  - Musculoskeletal stiffness [None]
  - Pain [None]
  - Hypoaesthesia [None]
  - Vision blurred [None]
  - Anxiety [None]
  - Burning sensation [None]
  - Panic attack [None]
  - Chills [None]
  - Migraine [None]
  - Tremor [None]

NARRATIVE: CASE EVENT DATE: 20170720
